FAERS Safety Report 5220771-4 (Version None)
Quarter: 2007Q1

REPORT INFORMATION
  Report Type: 
  Country: None (occurrence: None)
  Receive Date: 20070126
  Receipt Date: 20070118
  Transmission Date: 20070707
  Serious: Yes (Disabling)
  Sender: FDA-Public Use
  Company Number: GB-ROCHE-479442

PATIENT
  Age: 59 Year
  Sex: Female

DRUGS (13)
  1. CAPECITABINE [Suspect]
     Indication: BREAST CANCER METASTATIC
     Route: 065
     Dates: start: 20061207
  2. ASPIRIN [Concomitant]
  3. CITALOPRAM HYDROBROMIDE [Concomitant]
  4. DEXAMETHASONE TAB [Concomitant]
  5. DICLOFENAC SODIUM [Concomitant]
  6. FENTANYL [Concomitant]
     Route: 062
  7. LANSOPRAZOLE [Concomitant]
  8. METOCLOPRAMIDE [Concomitant]
  9. OXYNORM [Concomitant]
  10. SENNA [Concomitant]
  11. SERETIDE [Concomitant]
  12. SODIUM DOCUSATE [Concomitant]
  13. TIOTROPIUM BROMIDE [Concomitant]

REACTIONS (2)
  - DISSOCIATION [None]
  - DISTURBANCE IN ATTENTION [None]
